FAERS Safety Report 6284615-4 (Version None)
Quarter: 2009Q3

REPORT INFORMATION
  Report Type: 
  Country: None (occurrence: None)
  Receive Date: 20090723
  Receipt Date: 20090708
  Transmission Date: 20100115
  Serious: Yes (Hospitalization)
  Sender: FDA-Public Use
  Company Number: 2009002034

PATIENT
  Age: 56 Year
  Sex: Male
  Weight: 107.6 kg

DRUGS (2)
  1. ERLOTINIB (ERLOTINIB) (TABLET) (ERLOTINIB) [Suspect]
     Indication: RECTAL CANCER
     Dosage: (100 MG,DAYS 8-21 OF CYCLE 1, 1-21 ON SUBSEQUENT), ORAL
     Route: 048
     Dates: start: 20090417
  2. CETUXIMAB (CETUXIMAB) (INJECTION FOR INFUSION) [Suspect]
     Indication: RECTAL CANCER
     Dosage: (250 MG/KG, IV OVER 60-120 MIN WEEKLY), INTRAVENOUS
     Route: 042

REACTIONS (11)
  - BLOOD POTASSIUM DECREASED [None]
  - DRUG TOXICITY [None]
  - ECZEMA ASTEATOTIC [None]
  - HAEMATOCRIT DECREASED [None]
  - INTERNATIONAL NORMALISED RATIO INCREASED [None]
  - OEDEMA PERIPHERAL [None]
  - PAIN IN EXTREMITY [None]
  - PROTHROMBIN TIME PROLONGED [None]
  - PYREXIA [None]
  - URINARY TRACT INFECTION [None]
  - UROGENITAL HAEMORRHAGE [None]
